FAERS Safety Report 17132112 (Version 1)
Quarter: 2019Q4

REPORT INFORMATION
  Report Type: Spontaneous
  Country: US (occurrence: US)
  Receive Date: 20191210
  Receipt Date: 20191210
  Transmission Date: 20200122
  Serious: Yes (Death, Hospitalization)
  Sender: FDA-Public Use
  Company Number: US-JNJFOC-20191203318

PATIENT
  Age: 59 Year
  Sex: Male

DRUGS (1)
  1. PARACETAMOL [Suspect]
     Active Substance: ACETAMINOPHEN
     Indication: PRODUCT USED FOR UNKNOWN INDICATION
     Route: 065

REACTIONS (11)
  - Rhabdomyolysis [Fatal]
  - Coma [Fatal]
  - Acute respiratory distress syndrome [Fatal]
  - Hypoglycaemia [Fatal]
  - Tachycardia [Fatal]
  - Hepatotoxicity [Fatal]
  - Coagulopathy [Fatal]
  - Acute kidney injury [Fatal]
  - Metabolic acidosis [Fatal]
  - Toxicity to various agents [Fatal]
  - Hypotension [Fatal]
